FAERS Safety Report 8167315-5 (Version None)
Quarter: 2012Q1

REPORT INFORMATION
  Report Type: 
  Country: None (occurrence: None)
  Receive Date: 20120227
  Receipt Date: 20120221
  Transmission Date: 20120608
  Serious: No
  Sender: FDA-Public Use
  Company Number: US-PFIZER INC-2012048487

PATIENT
  Sex: Female

DRUGS (2)
  1. ATORVASTATIN CALCIUM [Suspect]
     Dosage: 10 MG, UNK
     Dates: start: 20111101
  2. LIPITOR [Suspect]
     Dosage: UNK
     Dates: start: 20110101

REACTIONS (1)
  - THYROID FUNCTION TEST ABNORMAL [None]
